FAERS Safety Report 9709449 (Version 1)
Quarter: 2013Q4

REPORT INFORMATION
  Report Type: Report from Study
  Country: US (occurrence: US)
  Receive Date: 20131126
  Receipt Date: 20131126
  Transmission Date: 20140711
  Serious: Yes (Other)
  Sender: FDA-Public Use
  Company Number: US-ROCHE-1305292

PATIENT
  Sex: Female

DRUGS (17)
  1. AVASTIN [Suspect]
     Indication: DIABETIC RETINOPATHY
     Route: 065
     Dates: start: 20131106
  2. AVASTIN [Suspect]
     Indication: DIABETIC RETINAL OEDEMA
  3. AVASTIN [Suspect]
     Indication: ANEURYSM
  4. GEMFIBROZIL [Concomitant]
  5. VITAMIN E [Concomitant]
  6. PANCREASE [Concomitant]
  7. LORATADINE [Concomitant]
  8. CARVEDILOL [Concomitant]
     Indication: HYPERTENSION
     Route: 065
  9. AMLODIPINE [Concomitant]
     Indication: HYPERTENSION
  10. DIOVAN [Concomitant]
  11. ZOLOFT [Concomitant]
     Indication: DEPRESSION
  12. APRESOLINE [Concomitant]
     Indication: ANXIETY
  13. FISH OIL [Concomitant]
  14. VITAMIN C [Concomitant]
  15. TRAMADOL [Concomitant]
     Indication: ARTHRALGIA
  16. HUMALOG MIX75/25 [Concomitant]
     Indication: DIABETES MELLITUS
     Dosage: 10 TO 20 UNITS
     Route: 058
  17. OMEPRAZOLE [Concomitant]

REACTIONS (4)
  - Ocular hyperaemia [Not Recovered/Not Resolved]
  - Sleep disorder [Recovered/Resolved]
  - Headache [Recovered/Resolved]
  - Eye pain [Recovered/Resolved]
